FAERS Safety Report 7113683-2 (Version None)
Quarter: 2010Q4

REPORT INFORMATION
  Report Type: 
  Country: None (occurrence: None)
  Receive Date: 20101119
  Receipt Date: 20101116
  Transmission Date: 20110411
  Serious: Yes (Hospitalization)
  Sender: FDA-Public Use
  Company Number: BE-ABBOTT-10P-013-0678567-00

PATIENT
  Sex: Female
  Weight: 92 kg

DRUGS (3)
  1. HUMIRA [Suspect]
     Indication: RHEUMATOID ARTHRITIS
     Dates: start: 20100805
  2. EMCORETIC [Concomitant]
     Indication: HYPERTENSION
     Dates: start: 20050101
  3. EMCORETIC [Concomitant]
     Indication: CARDIAC DISORDER

REACTIONS (2)
  - FATIGUE [None]
  - MYOCARDIAL ISCHAEMIA [None]
